FAERS Safety Report 8414945-9 (Version None)
Quarter: 2012Q2

REPORT INFORMATION
  Report Type: 
  Country: None (occurrence: None)
  Receive Date: 20120601
  Receipt Date: 20120601
  Transmission Date: 20120825
  Serious: Yes (Life-Threatening, Hospitalization, Disabling)
  Sender: FDA-Public Use
  Company Number: None

PATIENT
  Age: 35 Year
  Sex: Male
  Weight: 68.0396 kg

DRUGS (1)
  1. DIFLUCAN [Suspect]

REACTIONS (1)
  - STEVENS-JOHNSON SYNDROME [None]
